FAERS Safety Report 23722224 (Version 1)
Quarter: 2024Q2

REPORT INFORMATION
  Report Type: Spontaneous
  Country: US (occurrence: US)
  Receive Date: 20240409
  Receipt Date: 20240409
  Transmission Date: 20240716
  Serious: No
  Sender: FDA-Public Use
  Company Number: US-BAYER-2024A048525

PATIENT
  Age: 46 Year
  Sex: Female

DRUGS (1)
  1. MIRENA [Suspect]
     Active Substance: LEVONORGESTREL
     Indication: Endometrial hyperplasia
     Dosage: 20?G/DAY
     Route: 015
     Dates: start: 20240318, end: 20240318

REACTIONS (4)
  - Off label use [None]
  - Device use issue [None]
  - Uterine cervix stenosis [None]
  - Post procedural discomfort [None]

NARRATIVE: CASE EVENT DATE: 20240318
